FAERS Safety Report 8580927 (Version 2)
Quarter: 2014Q2

REPORT INFORMATION
  Report Type: Report from Study
  Country: US (occurrence: US)
  Receive Date: 20120525
  Receipt Date: 20140423
  Transmission Date: 20141212
  Serious: Yes (Other)
  Sender: FDA-Public Use
  Company Number: PHEH2012US006534

PATIENT
  Age: 9 Year
  Sex: Female

DRUGS (4)
  1. AFINITOR [Suspect]
     Indication: BRAIN NEOPLASM BENIGN
     Dosage: 5 MG, DAILY
     Route: 048
     Dates: start: 20120127
  2. SABRIL [Concomitant]
  3. SEROQUEL [Concomitant]
  4. DEPAKOTE [Concomitant]

REACTIONS (6)
  - Cerebral atrophy [Unknown]
  - Convulsion [Not Recovered/Not Resolved]
  - Fungal infection [Not Recovered/Not Resolved]
  - Sinusitis [Not Recovered/Not Resolved]
  - Stomatitis [Not Recovered/Not Resolved]
  - Acne [Recovering/Resolving]
